FAERS Safety Report 8532800-0 (Version None)
Quarter: 2012Q3

REPORT INFORMATION
  Report Type: 
  Country: None (occurrence: None)
  Receive Date: 20120724
  Receipt Date: 20120720
  Transmission Date: 20120928
  Serious: Yes (Other)
  Sender: FDA-Public Use
  Company Number: PHHY2012CA055322

PATIENT
  Sex: Female

DRUGS (1)
  1. SANDOSTATIN LAR [Suspect]
     Indication: HEPATIC CANCER METASTATIC
     Dosage: 20 MG, EVERY FOUR WEEKS
     Route: 030
     Dates: start: 20120425

REACTIONS (2)
  - FLUSHING [None]
  - DIARRHOEA [None]
